FAERS Safety Report 19186064 (Version 1)
Quarter: 2021Q2

REPORT INFORMATION
  Report Type: Spontaneous
  Country: US (occurrence: US)
  Receive Date: 20210427
  Receipt Date: 20210427
  Transmission Date: 20210717
  Serious: Yes (Other)
  Sender: FDA-Public Use
  Company Number: US-BAYER-2021-128636

PATIENT
  Age: 29 Year
  Sex: Female

DRUGS (1)
  1. LAROTRECTINIB [Suspect]
     Active Substance: LAROTRECTINIB
     Indication: SARCOMA UTERUS

REACTIONS (5)
  - Mental status changes [None]
  - Seizure [None]
  - Metastases to meninges [None]
  - Drug resistance [None]
  - Therapeutic product effect incomplete [None]
